FAERS Safety Report 6965279-0 (Version None)
Quarter: 2010Q3

REPORT INFORMATION
  Report Type: 
  Country: None (occurrence: None)
  Receive Date: 20100903
  Receipt Date: 20100824
  Transmission Date: 20110219
  Serious: Yes (Other)
  Sender: FDA-Public Use
  Company Number: CHPA2010PL13671

PATIENT
  Sex: Female

DRUGS (3)
  1. THERAFLU ACETAM/PHENEPH (NCH) [Suspect]
     Dosage: 1 DF, TID
     Route: 048
     Dates: start: 20100205, end: 20100205
  2. RUTINOSCORBIN [Concomitant]
     Dosage: UNK, UNK
     Route: 065
  3. ASCORBIC ACID [Concomitant]
     Dosage: UNK, UNK
     Route: 065

REACTIONS (4)
  - DYSPHAGIA [None]
  - DYSPNOEA [None]
  - NAUSEA [None]
  - RASH MACULO-PAPULAR [None]
